FAERS Safety Report 14098984 (Version 4)
Quarter: 2018Q2

REPORT INFORMATION
  Report Type: Spontaneous
  Country: FR (occurrence: FR)
  Receive Date: 20171017
  Receipt Date: 20180508
  Transmission Date: 20180711
  Serious: Yes (Death, Life-Threatening, Hospitalization, Other)
  Sender: FDA-Public Use
  Company Number: FR-SA-2017SA199608

PATIENT
  Age: 77 Year
  Sex: Male

DRUGS (4)
  1. RIFAMPICIN [Suspect]
     Active Substance: RIFAMPIN
     Indication: ENDOCARDITIS STAPHYLOCOCCAL
     Route: 065
  2. CEFAZOLIN [Interacting]
     Active Substance: CEFAZOLIN
     Indication: ENDOCARDITIS STAPHYLOCOCCAL
     Route: 042
  3. OXACILLIN [Concomitant]
     Active Substance: OXACILLIN SODIUM
     Indication: ENDOCARDITIS BACTERIAL
     Route: 065
  4. RIFAMPICIN [Interacting]
     Active Substance: RIFAMPIN
     Indication: ENDOCARDITIS STAPHYLOCOCCAL
     Route: 065

REACTIONS (11)
  - Coagulation factor VII level decreased [Unknown]
  - Prothrombin level decreased [Unknown]
  - Drug interaction [Unknown]
  - Coagulation factor X level decreased [Unknown]
  - Shock haemorrhagic [Fatal]
  - Hypovitaminosis [Unknown]
  - Pericardial haemorrhage [Not Recovered/Not Resolved]
  - Cardiogenic shock [Fatal]
  - Vitamin K decreased [Not Recovered/Not Resolved]
  - Hypoprothrombinaemia [Not Recovered/Not Resolved]
  - Haemoglobin decreased [Not Recovered/Not Resolved]
